FAERS Safety Report 6272905-0 (Version None)
Quarter: 2009Q3

REPORT INFORMATION
  Report Type: 
  Country: None (occurrence: None)
  Receive Date: 20090717
  Receipt Date: 20090710
  Transmission Date: 20100115
  Serious: Yes (Other)
  Sender: FDA-Public Use
  Company Number: GB-PFIZER INC-2009232465

PATIENT
  Age: 67 Year

DRUGS (10)
  1. FESOTERODINE [Suspect]
     Indication: HYPERTONIC BLADDER
     Dosage: 4 MG, 1X/DAY
     Route: 048
     Dates: start: 20090522, end: 20090608
  2. DOXAZOSIN [Concomitant]
     Dosage: UNK
     Route: 048
     Dates: start: 19910213
  3. ANGITIL - SLOW RELEASE [Concomitant]
     Dosage: UNK
     Route: 048
     Dates: start: 20030109
  4. METFORMIN [Concomitant]
     Dosage: UNK
     Route: 048
     Dates: start: 19980409
  5. MOXONIDINE [Concomitant]
     Dosage: UNK
     Route: 048
     Dates: start: 20080501
  6. IRBESARTAN [Concomitant]
     Dosage: UNK
     Route: 048
     Dates: start: 20000405
  7. SIMVASTATIN [Concomitant]
     Dosage: UNK
     Route: 048
     Dates: start: 19960325
  8. ACETYLSALICYLIC ACID [Concomitant]
     Dosage: UNK
     Route: 048
     Dates: start: 19990106
  9. DICLOFENAC [Concomitant]
     Dosage: UNK
     Route: 048
     Dates: start: 20051221
  10. FLUCLOXACILLIN [Concomitant]
     Dosage: UNK
     Route: 048
     Dates: start: 20090518, end: 20090531

REACTIONS (1)
  - LEFT VENTRICULAR FAILURE [None]
